FAERS Safety Report 8431029-4 (Version None)
Quarter: 2012Q2

REPORT INFORMATION
  Report Type: 
  Country: None (occurrence: None)
  Receive Date: 20120612
  Receipt Date: 20120530
  Transmission Date: 20120825
  Serious: Yes (Other)
  Sender: FDA-Public Use
  Company Number: AR-ROCHE-1074518

PATIENT
  Sex: Female

DRUGS (2)
  1. ARCOXIA [Concomitant]
  2. XOLAIR [Suspect]
     Indication: ASTHMA
     Dates: start: 20110601, end: 20120301

REACTIONS (10)
  - ALOPECIA [None]
  - HEPATIC ENZYME INCREASED [None]
  - DIABETES MELLITUS [None]
  - MITRAL VALVE INCOMPETENCE [None]
  - SYSTEMIC LUPUS ERYTHEMATOSUS [None]
  - PULMONARY HYPERTENSION [None]
  - RASH [None]
  - DRY SKIN [None]
  - OEDEMA PERIPHERAL [None]
  - ARTHRALGIA [None]
